FAERS Safety Report 18542960 (Version 1)
Quarter: 2020Q4

REPORT INFORMATION
  Report Type: Spontaneous
  Country: CO (occurrence: CO)
  Receive Date: 20201124
  Receipt Date: 20201124
  Transmission Date: 20210114
  Serious: Yes (Other)
  Sender: FDA-Public Use
  Company Number: CO-BIOMARINAP-CO-2020-133476

PATIENT
  Age: 16 Year
  Sex: Female
  Weight: 32 kg

DRUGS (3)
  1. VIMIZIM [Suspect]
     Active Substance: ELOSULFASE ALFA
     Indication: MUCOPOLYSACCHARIDOSIS IV
     Dosage: 65 MILLIGRAM, QW
     Route: 042
  2. VIMIZIM [Suspect]
     Active Substance: ELOSULFASE ALFA
     Dosage: 55 MILLIGRAM, QW
     Route: 042
     Dates: start: 20170725
  3. VIMIZIM [Suspect]
     Active Substance: ELOSULFASE ALFA
     Dosage: UNK
     Route: 042
     Dates: start: 20150601

REACTIONS (11)
  - Dyspnoea [Unknown]
  - Influenza like illness [Unknown]
  - Depression [Unknown]
  - Decreased appetite [Unknown]
  - Ageusia [Unknown]
  - Nasal congestion [Unknown]
  - Oropharyngeal pain [Unknown]
  - Cough [Unknown]
  - Chest pain [Unknown]
  - Throat irritation [Unknown]
  - Productive cough [Unknown]

NARRATIVE: CASE EVENT DATE: 20201112
